FAERS Safety Report 6608647-9 (Version None)
Quarter: 2010Q1

REPORT INFORMATION
  Report Type: 
  Country: None (occurrence: None)
  Receive Date: 20100301
  Receipt Date: 20100222
  Transmission Date: 20100710
  Serious: Yes (Death)
  Sender: FDA-Public Use
  Company Number: US-BRACCO-004009

PATIENT
  Sex: Male

DRUGS (7)
  1. ATROPINE [Concomitant]
     Route: 065
     Dates: start: 20100204, end: 20100204
  2. OXYGEN [Concomitant]
     Route: 055
     Dates: start: 20100204, end: 20100204
  3. SODIUM BICARBONATE [Concomitant]
     Route: 065
     Dates: start: 20100204, end: 20100204
  4. ISOVUE-128 [Suspect]
     Indication: COMPUTERISED TOMOGRAM
     Route: 042
     Dates: start: 20100204, end: 20100204
  5. ISOVUE-128 [Suspect]
     Indication: ABDOMINAL MASS
     Route: 042
     Dates: start: 20100204, end: 20100204
  6. PROPRANOLOL [Concomitant]
     Route: 065
  7. EPINEPHRINE [Concomitant]
     Dosage: 1:1000 STRENGTH
     Route: 065
     Dates: start: 20100204, end: 20100204

REACTIONS (4)
  - CARDIAC DISORDER [None]
  - LOSS OF CONSCIOUSNESS [None]
  - OXYGEN SATURATION DECREASED [None]
  - RESPIRATORY DEPRESSION [None]
